FAERS Safety Report 9344063 (Version 1)
Quarter: 2013Q2

REPORT INFORMATION
  Report Type: Spontaneous
  Country: CA (occurrence: CA)
  Receive Date: 20130612
  Receipt Date: 20130612
  Transmission Date: 20140414
  Serious: Yes (Other)
  Sender: FDA-Public Use
  Company Number: CA-PFIZER INC-2013174944

PATIENT
  Age: 46 Year
  Sex: Female
  Weight: 74.38 kg

DRUGS (4)
  1. PREGABALIN [Suspect]
     Indication: TRIGEMINAL NEURALGIA
     Dosage: 25 MG, 6X/DAY
     Route: 048
     Dates: start: 20130519
  2. CLONAZEPAM [Concomitant]
     Dosage: UNK
  3. LEVOTHYROXINE [Concomitant]
     Dosage: UNK
  4. TOPIRAMATE [Concomitant]
     Dosage: UNK

REACTIONS (4)
  - Off label use [Unknown]
  - White blood cell count decreased [Unknown]
  - Abdominal pain upper [Unknown]
  - Malaise [Unknown]
